FAERS Safety Report 20186834 (Version 11)
Quarter: 2022Q3

REPORT INFORMATION
  Report Type: Spontaneous
  Country: US (occurrence: US)
  Receive Date: 20211215
  Receipt Date: 20220905
  Transmission Date: 20221026
  Serious: Yes (Other)
  Sender: FDA-Public Use
  Company Number: US-NOVARTISTESTPH-NVSC2021US286003

PATIENT
  Sex: Female

DRUGS (6)
  1. ESTRADIOL [Suspect]
     Active Substance: ESTRADIOL
     Indication: Product used for unknown indication
     Dosage: 0.1 MG, (TRANSDERMAL PATCH)
     Route: 065
  2. ESTRADIOL [Suspect]
     Active Substance: ESTRADIOL
     Dosage: 0.075 MG, QD (24 HRS, 8TTS)
     Route: 062
  3. ESTRADIOL [Suspect]
     Active Substance: ESTRADIOL
     Dosage: 0.075 MG, Q12H
     Route: 062
  4. ESTRADIOL [Suspect]
     Active Substance: ESTRADIOL
     Dosage: 0.075 MG, Q12H
     Route: 062
  5. ESTRADIOL [Suspect]
     Active Substance: ESTRADIOL
     Dosage: 0.075 MG EVERY 4 DAY
     Route: 062
  6. VIVELLE-DOT [Suspect]
     Active Substance: ESTRADIOL
     Indication: Product used for unknown indication
     Dosage: UNK
     Route: 062

REACTIONS (21)
  - Cerebrovascular accident [Unknown]
  - Hot flush [Unknown]
  - Night sweats [Unknown]
  - Malaise [Unknown]
  - Neuralgia [Unknown]
  - Vaginal discharge [Unknown]
  - Feeling abnormal [Unknown]
  - Hormone level abnormal [Unknown]
  - Tremor [Unknown]
  - Anxiety [Unknown]
  - Anger [Unknown]
  - Cerebral disorder [Unknown]
  - Heart rate increased [Unknown]
  - Paraesthesia [Unknown]
  - Ophthalmic migraine [Unknown]
  - Nausea [Unknown]
  - Weight decreased [Unknown]
  - Breast tenderness [Unknown]
  - Wrong technique in product usage process [Unknown]
  - Product substitution issue [Unknown]
  - Drug ineffective [Unknown]
